FAERS Safety Report 26114558 (Version 1)
Quarter: 2025Q4

REPORT INFORMATION
  Report Type: Spontaneous
  Country: US (occurrence: US)
  Receive Date: 20251202
  Receipt Date: 20251202
  Transmission Date: 20260118
  Serious: No
  Sender: NOVARTIS
  Company Number: US-002147023-NVSC2025US185294

PATIENT
  Sex: Female

DRUGS (2)
  1. RHAPSIDO [Suspect]
     Active Substance: REMIBRUTINIB
     Indication: Product used for unknown indication
     Dosage: 25 MG, QD
     Route: 048
  2. RHAPSIDO [Suspect]
     Active Substance: REMIBRUTINIB
     Dosage: 25 MG, BID
     Route: 048

REACTIONS (1)
  - Headache [Recovered/Resolved]
